FAERS Safety Report 17550521 (Version 1)
Quarter: 2020Q1

REPORT INFORMATION
  Report Type: Spontaneous
  Country: JP (occurrence: JP)
  Receive Date: 20200317
  Receipt Date: 20200317
  Transmission Date: 20200409
  Serious: Yes (Life-Threatening, Hospitalization, Other)
  Sender: FDA-Public Use
  Company Number: JP-ELI_LILLY_AND_COMPANY-JP202003000125

PATIENT
  Age: 43 Year
  Sex: Male
  Weight: 85 kg

DRUGS (16)
  1. DULOXETINE HYDROCHLORIDE. [Suspect]
     Active Substance: DULOXETINE HYDROCHLORIDE
     Indication: DEPRESSION
     Dosage: 60 MG, EACH MORNING
     Route: 048
  2. ETIZOLAM [Suspect]
     Active Substance: ETIZOLAM
     Indication: INSOMNIA
     Dosage: 1 MG, DAILY
     Route: 048
  3. ATOZET COMBINATION LD [Suspect]
     Active Substance: ATORVASTATIN CALCIUM\EZETIMIBE
     Indication: HYPERTENSION
     Dosage: 1 DOSAGE FORM, DAILY
     Route: 048
  4. IRRIBOW [Suspect]
     Active Substance: RAMOSETRON HYDROCHLORIDE
     Indication: PRODUCT USED FOR UNKNOWN INDICATION
     Dosage: 5 UG, BID
     Route: 048
  5. DULOXETINE HYDROCHLORIDE. [Suspect]
     Active Substance: DULOXETINE HYDROCHLORIDE
     Indication: PERIARTHRITIS
  6. REFLEX [Suspect]
     Active Substance: MIRTAZAPINE
     Indication: DEPRESSION
     Dosage: 45 MG, DAILY
     Route: 048
  7. EPERISONE [Suspect]
     Active Substance: EPERISONE
     Indication: NEURALGIA
     Dosage: 50 MG, TID
     Route: 048
  8. LYRICA [Suspect]
     Active Substance: PREGABALIN
     Indication: NEURALGIA
     Dosage: 150 MG, TID
     Route: 048
  9. ZACRAS [Suspect]
     Active Substance: AMLODIPINE BESYLATE\AZILSARTAN
     Indication: HYPERTENSION
     Dosage: 1 DOSAGE FORM, DAILY
     Route: 048
  10. DULOXETINE HYDROCHLORIDE. [Suspect]
     Active Substance: DULOXETINE HYDROCHLORIDE
     Indication: BACK PAIN
  11. DULOXETINE HYDROCHLORIDE. [Suspect]
     Active Substance: DULOXETINE HYDROCHLORIDE
     Indication: SPINAL OSTEOARTHRITIS
  12. TRIAZOLAM. [Suspect]
     Active Substance: TRIAZOLAM
     Indication: INSOMNIA
     Dosage: 0.25 MG, PRN
     Route: 048
  13. RILMAZAFONE HYDROCHLORIDE [Suspect]
     Active Substance: RILMAZAFONE HYDROCHLORIDE
     Indication: INSOMNIA
     Dosage: 4 MG, DAILY
     Route: 048
  14. ZACRAS [Suspect]
     Active Substance: AMLODIPINE BESYLATE\AZILSARTAN
     Indication: HYPERLIPIDAEMIA
  15. DESYREL [Suspect]
     Active Substance: TRAZODONE HYDROCHLORIDE
     Indication: PRODUCT USED FOR UNKNOWN INDICATION
     Dosage: UNK
     Route: 065
  16. ATOZET COMBINATION LD [Suspect]
     Active Substance: ATORVASTATIN CALCIUM\EZETIMIBE
     Indication: HYPERLIPIDAEMIA

REACTIONS (3)
  - Electroencephalogram abnormal [Not Recovered/Not Resolved]
  - Subarachnoid haemorrhage [Recovered/Resolved]
  - Headache [Not Recovered/Not Resolved]

NARRATIVE: CASE EVENT DATE: 20180305
